FAERS Safety Report 12347899 (Version 1)
Quarter: 2016Q2

REPORT INFORMATION
  Report Type: Report from Study
  Country: PA (occurrence: PA)
  Receive Date: 20160509
  Receipt Date: 20160509
  Transmission Date: 20160815
  Serious: Yes (Death, Hospitalization, Disabling)
  Sender: FDA-Public Use
  Company Number: PHHY2016PA062405

PATIENT
  Age: 89 Year
  Sex: Male

DRUGS (2)
  1. EXELON PATCH [Suspect]
     Active Substance: RIVASTIGMINE
     Indication: DEMENTIA ALZHEIMER^S TYPE
     Dosage: 4.6 MG, QD (PATCH 5 CM2)
     Route: 062
     Dates: start: 2014, end: 20160420
  2. QUETIAPINE. [Concomitant]
     Active Substance: QUETIAPINE
     Indication: PRODUCT USED FOR UNKNOWN INDICATION
     Dosage: 0.25 DF, QD
     Route: 048

REACTIONS (11)
  - Dizziness [Unknown]
  - Brain neoplasm [Fatal]
  - Malaise [Unknown]
  - Aneurysm ruptured [Fatal]
  - Blood pressure increased [Unknown]
  - Head injury [Unknown]
  - General physical health deterioration [Unknown]
  - Dysstasia [Unknown]
  - Abasia [Unknown]
  - Fall [Unknown]
  - Cerebral haemorrhage [Unknown]

NARRATIVE: CASE EVENT DATE: 20160417
